FAERS Safety Report 6991493-4 (Version None)
Quarter: 2010Q3

REPORT INFORMATION
  Report Type: 
  Country: None (occurrence: None)
  Receive Date: 20100917
  Receipt Date: 20100903
  Transmission Date: 20110219
  Serious: Yes (Hospitalization)
  Sender: FDA-Public Use
  Company Number: US-ELI_LILLY_AND_COMPANY-US201009001404

PATIENT
  Age: 30 Year
  Sex: Female
  Weight: 53.9 kg

DRUGS (9)
  1. PEMETREXED [Suspect]
     Indication: NON-SMALL CELL LUNG CANCER
     Dosage: 500 MG/M2, MONTHLY (1/M)
     Route: 042
     Dates: start: 20100727
  2. FAMOTIDINE [Concomitant]
     Dates: start: 20100611
  3. KEPPRA [Concomitant]
     Dates: start: 20100628
  4. VITAMIN B-12 [Concomitant]
     Dates: start: 20100720
  5. FOLIC ACID [Concomitant]
     Dosage: 1 MG, UNK
     Dates: start: 20100721
  6. DECADRON [Concomitant]
     Dates: start: 20100726
  7. IMODIUM [Concomitant]
     Dates: start: 20100729
  8. ZOFRAN [Concomitant]
     Dates: start: 20100727
  9. PRILOSEC [Concomitant]
     Dates: start: 20100729, end: 20100813

REACTIONS (1)
  - HEADACHE [None]
